FAERS Safety Report 25635420 (Version 2)
Quarter: 2025Q3

REPORT INFORMATION
  Report Type: Spontaneous
  Country: US (occurrence: US)
  Receive Date: 20250802
  Receipt Date: 20250819
  Transmission Date: 20251020
  Serious: No
  Sender: HETERO
  Company Number: US-HETERO-HET2025US04265

PATIENT
  Age: 70 Year
  Sex: Male
  Weight: 167 kg

DRUGS (3)
  1. ROFLUMILAST [Suspect]
     Active Substance: ROFLUMILAST
     Indication: Multiple sclerosis
     Route: 048
     Dates: start: 20250405, end: 20250712
  2. LISINOPRIL [Concomitant]
     Active Substance: LISINOPRIL
     Indication: Product used for unknown indication
     Route: 065
  3. SIMVASTATIN [Concomitant]
     Active Substance: SIMVASTATIN
     Indication: Product used for unknown indication
     Route: 065

REACTIONS (2)
  - Gout [Recovered/Resolved]
  - Off label use [Unknown]

NARRATIVE: CASE EVENT DATE: 20250409
